FAERS Safety Report 20432508 (Version 1)
Quarter: 2022Q1

REPORT INFORMATION
  Report Type: Spontaneous
  Country: US (occurrence: US)
  Receive Date: 20220204
  Receipt Date: 20220204
  Transmission Date: 20220424
  Serious: No
  Sender: FDA-Public Use
  Company Number: US-PERRIGO-21US005496

PATIENT
  Sex: Female

DRUGS (2)
  1. TRETINOIN [Suspect]
     Active Substance: TRETINOIN
     Indication: Acne
     Dosage: UNKNOWN, PRN
     Route: 061
     Dates: start: 2001, end: 202104
  2. TRETINOIN [Suspect]
     Active Substance: TRETINOIN
     Dosage: UNKNOWN, PRN
     Route: 061
     Dates: start: 20210407

REACTIONS (4)
  - Application site pain [Recovered/Resolved]
  - Application site exfoliation [Recovered/Resolved]
  - Application site erythema [Recovered/Resolved]
  - Drug ineffective [Unknown]

NARRATIVE: CASE EVENT DATE: 20010101
